FAERS Safety Report 7308954-0 (Version None)
Quarter: 2011Q1

REPORT INFORMATION
  Report Type: 
  Country: None (occurrence: None)
  Receive Date: 20110223
  Receipt Date: 20110221
  Transmission Date: 20110831
  Serious: Yes (Other)
  Sender: FDA-Public Use
  Company Number: US-AMGEN-USASP2011009748

PATIENT
  Sex: Male

DRUGS (3)
  1. CORTICOSTEROIDS [Concomitant]
  2. IVIGLOB-EX [Concomitant]
  3. NPLATE [Suspect]
     Indication: IDIOPATHIC THROMBOCYTOPENIC PURPURA
     Dates: start: 20100628, end: 20110103

REACTIONS (4)
  - VIRAL INFECTION [None]
  - DRUG INEFFECTIVE [None]
  - PLATELET COUNT DECREASED [None]
  - INFECTION [None]
